FAERS Safety Report 4854396-7 (Version None)
Quarter: 2005Q4

REPORT INFORMATION
  Report Type: 
  Country: None (occurrence: None)
  Receive Date: 20051213
  Receipt Date: 20051128
  Transmission Date: 20060501
  Serious: Yes (Hospitalization)
  Sender: FDA-Public Use
  Company Number: PAR_0424_2005

PATIENT
  Age: 43 Year
  Sex: Female
  Weight: 53 kg

DRUGS (12)
  1. ALLOPURINOL [Suspect]
     Indication: ARTHRALGIA
     Dosage: 300 MG QDAY
     Dates: start: 20020124, end: 20020126
  2. ALLOPURINOL [Suspect]
     Indication: HYPERURICAEMIA
     Dosage: 300 MG QDAY
     Dates: start: 20020124, end: 20020126
  3. ALLOPURINOL [Suspect]
     Indication: JOINT SWELLING
     Dosage: 300 MG QDAY
     Dates: start: 20020124, end: 20020126
  4. ALLOPURINOL [Suspect]
     Indication: ARTHRALGIA
     Dosage: 200 MG QDAY
     Dates: start: 20020126, end: 20020212
  5. ALLOPURINOL [Suspect]
     Indication: HYPERURICAEMIA
     Dosage: 200 MG QDAY
     Dates: start: 20020126, end: 20020212
  6. ALLOPURINOL [Suspect]
     Indication: JOINT SWELLING
     Dosage: 200 MG QDAY
     Dates: start: 20020126, end: 20020212
  7. HYDROTALCITS [Concomitant]
  8. VITAMIN B COMPLEX CAP [Concomitant]
  9. ASCORBIC ACID [Concomitant]
  10. CALCIUM CARBONATE [Concomitant]
  11. AMLODIPINE [Concomitant]
  12. FOSINOPRIL SODIUM [Concomitant]

REACTIONS (22)
  - ANAEMIA [None]
  - APLASIA PURE RED CELL [None]
  - CATHETER SITE INFECTION [None]
  - CONDITION AGGRAVATED [None]
  - DRUG HYPERSENSITIVITY [None]
  - ERYTHROID SERIES ABNORMAL [None]
  - ESCHERICHIA URINARY TRACT INFECTION [None]
  - EYELID OEDEMA [None]
  - GASTRITIS EROSIVE [None]
  - GASTRITIS HAEMORRHAGIC [None]
  - HEPATIC FUNCTION ABNORMAL [None]
  - LEUKOCYTOSIS [None]
  - LUNG INFILTRATION [None]
  - LYMPHADENOPATHY [None]
  - MARROW HYPERPLASIA [None]
  - MICROCYTOSIS [None]
  - PNEUMONITIS CRYPTOCOCCAL [None]
  - REFUSAL OF TREATMENT BY PATIENT [None]
  - SKIN EXFOLIATION [None]
  - STAPHYLOCOCCAL SEPSIS [None]
  - TACHYCARDIA [None]
  - VAGINAL BURNING SENSATION [None]
